FAERS Safety Report 12975225 (Version 1)
Quarter: 2016Q4

REPORT INFORMATION
  Report Type: Spontaneous
  Country: US (occurrence: US)
  Receive Date: 20161123
  Receipt Date: 20161123
  Transmission Date: 20170207
  Serious: No
  Sender: FDA-Public Use
  Company Number: None

PATIENT
  Age: 96 Year
  Sex: Male
  Weight: 75.7 kg

DRUGS (5)
  1. AMLODIPINE [Concomitant]
     Active Substance: AMLODIPINE BESYLATE
  2. WARFARIN [Suspect]
     Active Substance: WARFARIN
     Indication: DEEP VEIN THROMBOSIS
     Dosage: OTHER FREQUENCY:SEE NARRATIVE; ORAL?
     Route: 048
     Dates: start: 20161025, end: 20161118
  3. TAMSULOSIN [Concomitant]
     Active Substance: TAMSULOSIN
  4. LEVOTHYROXINE. [Concomitant]
     Active Substance: LEVOTHYROXINE
  5. FUROSEMIDE. [Concomitant]
     Active Substance: FUROSEMIDE

REACTIONS (3)
  - International normalised ratio decreased [None]
  - Product substitution issue [None]
  - Drug effect decreased [None]

NARRATIVE: CASE EVENT DATE: 20161118
